FAERS Safety Report 15612987 (Version 1)
Quarter: 2018Q4

REPORT INFORMATION
  Report Type: Spontaneous
  Country: BE (occurrence: BE)
  Receive Date: 20181113
  Receipt Date: 20181113
  Transmission Date: 20190205
  Serious: Yes (Other)
  Sender: FDA-Public Use
  Company Number: BE-PFIZER INC-2018462312

PATIENT
  Age: 71 Year
  Sex: Female

DRUGS (3)
  1. MEDROL [Suspect]
     Active Substance: METHYLPREDNISOLONE
  2. ENBREL [Suspect]
     Active Substance: ETANERCEPT
     Dosage: 50 MG, UNK
     Route: 058
     Dates: start: 2014, end: 2017
  3. LEDERTREXATE [Suspect]
     Active Substance: METHOTREXATE

REACTIONS (3)
  - Pelvic abscess [Unknown]
  - Immunodeficiency [Unknown]
  - Sepsis [Unknown]
